FAERS Safety Report 12979927 (Version 1)
Quarter: 2016Q4

REPORT INFORMATION
  Report Type: Spontaneous
  Country: ES (occurrence: ES)
  Receive Date: 20161128
  Receipt Date: 20161128
  Transmission Date: 20170207
  Serious: Yes (Other)
  Sender: FDA-Public Use
  Company Number: PHHY2016ES159065

PATIENT
  Age: 20 Year
  Sex: Male

DRUGS (5)
  1. CLOZAPINE. [Concomitant]
     Active Substance: CLOZAPINE
     Indication: SCHIZOPHRENIA
     Dosage: 250 MG/DAY
     Route: 065
  2. VALPROIC ACID. [Interacting]
     Active Substance: VALPROIC ACID
     Indication: SCHIZOPHRENIA
     Dosage: 700 MG/DAY
     Route: 065
  3. VALPROIC ACID. [Interacting]
     Active Substance: VALPROIC ACID
     Dosage: 1200 MG/DAY
     Route: 065
  4. VALPROIC ACID. [Interacting]
     Active Substance: VALPROIC ACID
     Dosage: 1000 MG/DAY
     Route: 065
  5. IBUPROFEN. [Suspect]
     Active Substance: IBUPROFEN
     Indication: PRODUCT USED FOR UNKNOWN INDICATION
     Dosage: 1800 MG/DAY
     Route: 065

REACTIONS (1)
  - Drug interaction [Unknown]
